FAERS Safety Report 9055535 (Version 4)
Quarter: 2013Q1

REPORT INFORMATION
  Report Type: Spontaneous
  Country: JP (occurrence: JP)
  Receive Date: 20130206
  Receipt Date: 20130321
  Transmission Date: 20140127
  Serious: Yes (Other)
  Sender: FDA-Public Use
  Company Number: JP-GLAXOSMITHKLINE-B0864211A

PATIENT
  Age: 25 None
  Sex: Female
  Weight: 78 kg

DRUGS (6)
  1. ARIXTRA [Suspect]
     Indication: THROMBOSIS PROPHYLAXIS
     Dosage: 2.5MG PER DAY
     Route: 058
     Dates: start: 20130108, end: 20130110
  2. CLEXANE [Suspect]
     Indication: THROMBOSIS PROPHYLAXIS
     Dosage: 2IU3 TWICE PER DAY
     Route: 058
     Dates: start: 20130105, end: 20130107
  3. LOXOPROFEN [Concomitant]
     Indication: ANALGESIC THERAPY
     Dosage: 60MG THREE TIMES PER DAY
     Route: 048
     Dates: start: 20130105, end: 20130109
  4. REBAMIPIDE [Concomitant]
     Indication: PROPHYLAXIS AGAINST GASTROINTESTINAL ULCER
     Dosage: 100MG THREE TIMES PER DAY
     Route: 048
     Dates: start: 20130105, end: 20130109
  5. PARTAN M [Concomitant]
     Indication: PRODUCT USED FOR UNKNOWN INDICATION
     Dosage: .125MG THREE TIMES PER DAY
     Route: 048
     Dates: start: 20130105, end: 20130109
  6. EMPYNASE P [Concomitant]
     Indication: PRODUCT USED FOR UNKNOWN INDICATION
     Dosage: 18IU3 THREE TIMES PER DAY
     Route: 048
     Dates: start: 20130105, end: 20130109

REACTIONS (1)
  - Haemorrhage subcutaneous [Recovered/Resolved]
